FAERS Safety Report 7626334-5 (Version None)
Quarter: 2011Q3

REPORT INFORMATION
  Report Type: 
  Country: None (occurrence: None)
  Receive Date: 20110721
  Receipt Date: 20110715
  Transmission Date: 20111222
  Serious: Yes (Death, Hospitalization)
  Sender: FDA-Public Use
  Company Number: PHHY2011IT63641

PATIENT
  Sex: Female

DRUGS (11)
  1. ZOMETA [Suspect]
     Indication: MULTIPLE MYELOMA
     Dosage: 1 DF, CYCLIC
     Route: 042
     Dates: start: 20010301, end: 20090601
  2. KANRENOL [Concomitant]
     Dosage: UNK UKN, UNK
  3. RIOPAN [Concomitant]
  4. ALENDRONATE SODIUM [Concomitant]
     Dosage: UNK UKN, UNK
  5. LASIX [Concomitant]
     Dosage: UNK UKN, UNK
  6. ALLOPURINOL [Concomitant]
     Dosage: UNK UKN, UNK
  7. DIFLUCAN [Concomitant]
     Dosage: UNK UKN, UNK
  8. LUCEN [Concomitant]
     Dosage: UNK UKN, UNK
  9. DEXAMETHASONE SODIUM PHOSPHATE [Concomitant]
     Dosage: UNK UKN, UNK
  10. BACTRIM [Concomitant]
     Dosage: UNK UKN, UNK
  11. OXYCONTIN [Concomitant]
     Dosage: UNK UKN, UNK

REACTIONS (3)
  - DEATH [None]
  - OSTEITIS [None]
  - OSTEONECROSIS OF JAW [None]
